FAERS Safety Report 6382283-4 (Version None)
Quarter: 2009Q3

REPORT INFORMATION
  Report Type: 
  Country: None (occurrence: None)
  Receive Date: 20090930
  Receipt Date: 20090831
  Transmission Date: 20100115
  Serious: Yes (Death, Other)
  Sender: FDA-Public Use
  Company Number: US-PURDUE-DEU-2009-0005520

PATIENT
  Sex: Female

DRUGS (2)
  1. NON-PMN HYDROMORPHONE HCL [Suspect]
     Indication: PAIN
  2. FENTANYL [Interacting]
     Indication: HYPOTONIA

REACTIONS (3)
  - ASPIRATION [None]
  - DRUG INTERACTION [None]
  - REGURGITATION [None]
